FAERS Safety Report 4439186-1 (Version None)
Quarter: 2004Q3

REPORT INFORMATION
  Report Type: 
  Country: None (occurrence: None)
  Receive Date: 20040831
  Receipt Date: 20040819
  Transmission Date: 20050211
  Serious: Yes (Other)
  Sender: FDA-Public Use
  Company Number: FLUV00304001526

PATIENT
  Age: 65 Year
  Sex: Male

DRUGS (11)
  1. FLUVOXAMINE MALEATE [Suspect]
     Indication: DEPRESSION
     Dosage: 50 MG DAILY PO, DAILY PO
     Route: 048
     Dates: start: 20030820, end: 20030101
  2. FLUVOXAMINE MALEATE [Suspect]
     Indication: DEPRESSION
     Dosage: 50 MG DAILY PO, DAILY PO
     Route: 048
     Dates: start: 20030101, end: 20031216
  3. SEDIEL (TANDOSPIRONE CITRATE) [Suspect]
     Indication: ANXIETY
     Dosage: 90 MG DAILY PO, 90 MG DAILY PO
     Route: 048
     Dates: start: 20030820, end: 20031010
  4. SEDIEL (TANDOSPIRONE CITRATE) [Suspect]
     Indication: DEPRESSION
     Dosage: 90 MG DAILY PO, 90 MG DAILY PO
     Route: 048
     Dates: start: 20030820, end: 20031010
  5. SEDIEL (TANDOSPIRONE CITRATE) [Suspect]
     Indication: ANXIETY
     Dosage: 90 MG DAILY PO, 90 MG DAILY PO
     Route: 048
     Dates: start: 20031111, end: 20031127
  6. SEDIEL (TANDOSPIRONE CITRATE) [Suspect]
     Indication: DEPRESSION
     Dosage: 90 MG DAILY PO, 90 MG DAILY PO
     Route: 048
     Dates: start: 20031111, end: 20031127
  7. TRAZODONE HCL [Concomitant]
  8. DEPAS (ETIZOLAM) [Concomitant]
  9. AMOBAN (ZOPICLONE) [Concomitant]
  10. EVAMYL (LORMETAZEPAM) [Concomitant]
  11. DOGMATYL (SULPIRIDE) [Concomitant]

REACTIONS (12)
  - ALANINE AMINOTRANSFERASE INCREASED [None]
  - BLOOD ALBUMIN INCREASED [None]
  - BLOOD AMYLASE INCREASED [None]
  - BLOOD CHLORIDE DECREASED [None]
  - BLOOD LACTATE DEHYDROGENASE INCREASED [None]
  - BLOOD POTASSIUM DECREASED [None]
  - BLOOD UREA DECREASED [None]
  - CIRCULATORY COLLAPSE [None]
  - DRUG INTERACTION [None]
  - GAMMA-GLUTAMYLTRANSFERASE INCREASED [None]
  - SEROTONIN SYNDROME [None]
  - TREATMENT NONCOMPLIANCE [None]
